FAERS Safety Report 10408476 (Version 1)
Quarter: 2014Q3

REPORT INFORMATION
  Report Type: Spontaneous
  Country: JP (occurrence: None)
  Receive Date: 20140821
  Receipt Date: 20140821
  Transmission Date: 20150326
  Serious: Yes (Hospitalization)
  Sender: FDA-Public Use
  Company Number: INT_00393_2014

PATIENT
  Age: 62 Year
  Sex: Male

DRUGS (5)
  1. VALSARTAN (UNKNOWN) [Concomitant]
     Active Substance: VALSARTAN
  2. GIMERACIL W/OTERACIL POTASSIUM/TEGAFUR (UNKNOWN) [Concomitant]
  3. AZELNIDIPINE (UNKNOWN) [Concomitant]
  4. FAMOTIDINE (UNKNOWN) [Concomitant]
     Active Substance: FAMOTIDINE
  5. CISPLATIN (CISPLATIN) (HQ SPECIALTY) [Suspect]
     Active Substance: CISPLATIN
     Indication: PRODUCT USED FOR UNKNOWN INDICATION
     Dosage: 110 MG, [FREQUENCY UNKNOWN}

REACTIONS (6)
  - Leukocytosis [None]
  - Renal impairment [None]
  - Coronary artery thrombosis [None]
  - Anaemia [None]
  - Acute myocardial infarction [None]
  - Toxicity to various agents [None]
